FAERS Safety Report 10055254 (Version 2)
Quarter: 2014Q4

REPORT INFORMATION
  Report Type: Report from Study
  Country: US (occurrence: US)
  Receive Date: 20140403
  Receipt Date: 20141118
  Transmission Date: 20150528
  Serious: Yes (Hospitalization)
  Sender: FDA-Public Use
  Company Number: US-ROCHE-1370967

PATIENT
  Age: 56 Year
  Sex: Male

DRUGS (5)
  1. ALBUTEROL. [Concomitant]
     Active Substance: ALBUTEROL
  2. SINGULAIR [Concomitant]
     Active Substance: MONTELUKAST SODIUM
  3. XOLAIR [Suspect]
     Active Substance: OMALIZUMAB
     Indication: PRODUCT USED FOR UNKNOWN INDICATION
     Route: 058
  4. COMBIVENT [Concomitant]
     Active Substance: ALBUTEROL SULFATE\IPRATROPIUM BROMIDE
  5. SYMBICORT [Concomitant]
     Active Substance: BUDESONIDE\FORMOTEROL FUMARATE DIHYDRATE

REACTIONS (12)
  - Middle insomnia [Unknown]
  - Cyanosis [Unknown]
  - Wheezing [Unknown]
  - Hyperventilation [Unknown]
  - Mood swings [Unknown]
  - Asthma [Unknown]
  - Chest discomfort [Unknown]
  - Restlessness [Unknown]
  - Nail discolouration [Unknown]
  - Cough [Unknown]
  - Agitation [Unknown]
  - Dyspnoea [Unknown]
